FAERS Safety Report 7675262-8 (Version None)
Quarter: 2011Q3

REPORT INFORMATION
  Report Type: 
  Country: None (occurrence: None)
  Receive Date: 20110810
  Receipt Date: 20110803
  Transmission Date: 20111222
  Serious: Yes (Death)
  Sender: FDA-Public Use
  Company Number: CO-GENENTECH-322517

PATIENT
  Sex: Male

DRUGS (1)
  1. MABTHERA [Suspect]
     Indication: SCLERODERMA
     Dosage: 1000 MG, UNK
     Route: 042
     Dates: start: 20100717, end: 20110512

REACTIONS (2)
  - SUICIDE ATTEMPT [None]
  - DEPRESSION [None]
